FAERS Safety Report 23405975 (Version 2)
Quarter: 2024Q1

REPORT INFORMATION
  Report Type: Report from Study
  Country: CA (occurrence: CA)
  Receive Date: 20240116
  Receipt Date: 20240221
  Transmission Date: 20240410
  Serious: Yes (Hospitalization)
  Sender: FDA-Public Use
  Company Number: CA-BAUSCH-BL-2022-007350

PATIENT
  Sex: Female
  Weight: 78.458 kg

DRUGS (6)
  1. CONTRAVE [Suspect]
     Active Substance: BUPROPION HYDROCHLORIDE\NALTREXONE HYDROCHLORIDE
     Indication: Weight control
     Dosage: 90/8 MG, 1 TAB IN MORNING (SECOND MONTH)
     Route: 048
     Dates: start: 20220214, end: 202204
  2. CONTRAVE [Suspect]
     Active Substance: BUPROPION HYDROCHLORIDE\NALTREXONE HYDROCHLORIDE
     Dosage: 90/8 MG, 1 TABLET/DAY (SECOND ATTEMPT)
     Route: 048
     Dates: start: 20220601, end: 20230120
  3. CONTRAVE [Suspect]
     Active Substance: BUPROPION HYDROCHLORIDE\NALTREXONE HYDROCHLORIDE
     Dosage: 90/8 MG, FIRST WEEK TAKING 1 TABLET/DAY (THIRD ATTEMPT)
     Route: 048
     Dates: start: 20230123, end: 20230128
  4. CONTRAVE [Suspect]
     Active Substance: BUPROPION HYDROCHLORIDE\NALTREXONE HYDROCHLORIDE
     Dosage: 90/8 MG, 1 TABLET QAM, 1 TABLET QPM (THIRD ATTEMPT)
     Route: 048
     Dates: start: 20230129, end: 20230524
  5. CONTRAVE [Suspect]
     Active Substance: BUPROPION HYDROCHLORIDE\NALTREXONE HYDROCHLORIDE
     Dosage: 90/8MG, FIRST WEEK TAKING 1 TABLET/DAY (FOURTH ATTEMPT)
     Route: 048
     Dates: start: 20230901, end: 202309
  6. CONTRAVE [Suspect]
     Active Substance: BUPROPION HYDROCHLORIDE\NALTREXONE HYDROCHLORIDE
     Dosage: 90/8MG, 1 TABLET/DAY (FIFTH ATTEMPT)
     Route: 048
     Dates: start: 20240101

REACTIONS (20)
  - Burns third degree [Not Recovered/Not Resolved]
  - Abdominal distension [Recovered/Resolved]
  - Food aversion [Not Recovered/Not Resolved]
  - Brain fog [Not Recovered/Not Resolved]
  - Weight fluctuation [Unknown]
  - Food craving [Not Recovered/Not Resolved]
  - Weight increased [Not Recovered/Not Resolved]
  - Ligament sprain [Not Recovered/Not Resolved]
  - Abdominal discomfort [Recovered/Resolved]
  - Nausea [Not Recovered/Not Resolved]
  - Headache [Recovered/Resolved]
  - Fatigue [Not Recovered/Not Resolved]
  - Constipation [Not Recovered/Not Resolved]
  - Dysgeusia [Not Recovered/Not Resolved]
  - Thirst [Not Recovered/Not Resolved]
  - Inability to afford medication [Unknown]
  - Therapy interrupted [Unknown]
  - Intentional product misuse [Unknown]
  - Product dose omission in error [Unknown]
  - Product dose omission issue [Unknown]

NARRATIVE: CASE EVENT DATE: 20220101
